FAERS Safety Report 17106217 (Version 1)
Quarter: 2019Q4

REPORT INFORMATION
  Report Type: Report from Study
  Country: IT (occurrence: IT)
  Receive Date: 20191203
  Receipt Date: 20191203
  Transmission Date: 20200122
  Serious: Yes (Hospitalization)
  Sender: FDA-Public Use
  Company Number: IT-PFIZER INC-2019515646

PATIENT
  Age: 24 Year
  Sex: Male

DRUGS (5)
  1. ALCOVER [Suspect]
     Active Substance: SODIUM OXYBATE
     Dosage: 70 ML, TOTAL
     Route: 048
     Dates: start: 20181225, end: 20181225
  2. XANAX [Suspect]
     Active Substance: ALPRAZOLAM
     Dosage: 16 DF, TOTAL
     Route: 048
     Dates: start: 20181225, end: 20181225
  3. QUETIAPINE. [Concomitant]
     Active Substance: QUETIAPINE
     Dosage: 200 MG, UNK
  4. MODITEN [FLUPHENAZINE DECANOATE] [Suspect]
     Active Substance: FLUPHENAZINE DECANOATE
     Dosage: 1 DF, TOTAL
     Route: 048
     Dates: start: 20181225, end: 20181225
  5. PREGABALIN. [Concomitant]
     Active Substance: PREGABALIN
     Dosage: 150 MG, UNK

REACTIONS (1)
  - Sopor [Recovered/Resolved]

NARRATIVE: CASE EVENT DATE: 20181225
